FAERS Safety Report 9507863 (Version 1)
Quarter: 2013Q1

REPORT INFORMATION
  Report Type: Spontaneous
  Country: US (occurrence: None)
  Receive Date: 20130305
  Receipt Date: 20130305
  Transmission Date: 20140127
  Serious: Yes (Other)
  Sender: FDA-Public Use
  Company Number: 163-21880-12021664

PATIENT
  Age: 58 Year
  Sex: Male

DRUGS (3)
  1. REVLIMID (LENALIDOMIDE) (25 MILLIGRAM, CAPSULES) [Suspect]
     Indication: PLASMA CELL MYELOMA
     Dosage: EVERY 21 DAYS
     Route: 048
     Dates: start: 20111225
  2. DEXAMETHASONE (DEXAMETHASONE) [Concomitant]
  3. CAMPRAL (ACAMPROSATE CALCIUM) [Concomitant]

REACTIONS (1)
  - Deep vein thrombosis [None]
